FAERS Safety Report 10596180 (Version 2)
Quarter: 2014Q4

REPORT INFORMATION
  Report Type: Spontaneous
  Country: US (occurrence: US)
  Receive Date: 20141120
  Receipt Date: 20141225
  Transmission Date: 20150529
  Serious: Yes (Other)
  Sender: FDA-Public Use
  Company Number: PHEH2014US022870

PATIENT
  Sex: Female

DRUGS (5)
  1. VIVELLE DOT [Suspect]
     Active Substance: ESTRADIOL
     Indication: PRODUCT USED FOR UNKNOWN INDICATION
     Dosage: 0.375 MG, UNK
     Route: 062
  2. VIVELLE DOT [Suspect]
     Active Substance: ESTRADIOL
     Dosage: UNK
     Route: 062
  3. VIVELLE DOT [Suspect]
     Active Substance: ESTRADIOL
     Dosage: 0.025 MG, UNK
     Route: 062
  4. ESTROGEN [Suspect]
     Active Substance: ESTRONE\SUS SCROFA OVARY
     Indication: PRODUCT USED FOR UNKNOWN INDICATION
     Dosage: UNK
     Route: 065
  5. AZOR [Concomitant]
     Active Substance: AMLODIPINE BESYLATE\OLMESARTAN MEDOXOMIL
     Indication: PRODUCT USED FOR UNKNOWN INDICATION
     Dosage: UNK UKN, UNK
     Route: 065

REACTIONS (4)
  - Hot flush [Unknown]
  - Hypertension [Unknown]
  - Drug ineffective [Unknown]
  - Cerebrovascular accident [Unknown]
